FAERS Safety Report 7675653-5 (Version None)
Quarter: 2011Q3

REPORT INFORMATION
  Report Type: 
  Country: None (occurrence: None)
  Receive Date: 20110810
  Receipt Date: 20110728
  Transmission Date: 20111222
  Serious: Yes (Other)
  Sender: FDA-Public Use
  Company Number: GB-ELI_LILLY_AND_COMPANY-GB201108000355

PATIENT
  Age: 39 Year
  Sex: Female

DRUGS (4)
  1. EXENATIDE [Suspect]
     Indication: HYPERGLYCAEMIA
     Dosage: 5 UG, BID
  2. EXENATIDE [Suspect]
     Dosage: 10 UG, BID
  3. LEVEMIR [Concomitant]
     Dosage: UNK
  4. PREDNISONE [Concomitant]
     Indication: SARCOIDOSIS
     Dosage: 20 MG, UNKNOWN

REACTIONS (3)
  - WEIGHT DECREASED [None]
  - GLYCOSYLATED HAEMOGLOBIN INCREASED [None]
  - BLOOD GLUCOSE INCREASED [None]
